FAERS Safety Report 8848270 (Version 2)
Quarter: 2012Q4

REPORT INFORMATION
  Report Type: 
  Country: JP (occurrence: JP)
  Receive Date: 20121018
  Receipt Date: 20121025
  Transmission Date: 20130627
  Serious: Yes (Life-Threatening)
  Sender: FDA-Public Use
  Company Number: JP-OTSUKA-JP-2012-16572

PATIENT
  Age: 71 Year
  Sex: Female

DRUGS (3)
  1. PLETAAL [Suspect]
     Indication: PERIPHERAL ARTERIAL OCCLUSIVE DISEASE
     Dosage: UNK
     Route: 048
  2. ASPIRIN [Concomitant]
     Dosage: UNK
     Route: 048
  3. CLOPIDOGREL SULFATE [Concomitant]
     Route: 048

REACTIONS (1)
  - Brain stem haemorrhage [Unknown]
